FAERS Safety Report 12707162 (Version 6)
Quarter: 2016Q4

REPORT INFORMATION
  Report Type: Report from Study
  Country: TR (occurrence: TR)
  Receive Date: 20160901
  Receipt Date: 20161017
  Transmission Date: 20170207
  Serious: Yes (Hospitalization, Other)
  Sender: FDA-Public Use
  Company Number: PHHO2016TR012526

PATIENT
  Age: 39 Year
  Sex: Female
  Weight: 62 kg

DRUGS (11)
  1. SOM230 [Suspect]
     Active Substance: PASIREOTIDE
     Indication: PITUITARY-DEPENDENT CUSHING^S SYNDROME
     Dosage: 0.6 MG, BID
     Route: 058
     Dates: start: 20160504, end: 20160530
  2. INSULIN GLARGINE [Concomitant]
     Active Substance: INSULIN GLARGINE
     Indication: DIABETES MELLITUS
     Dosage: 12 UNIT
     Route: 065
     Dates: start: 20160805, end: 20160907
  3. LIRAGLUTIDE [Concomitant]
     Active Substance: LIRAGLUTIDE
     Indication: DIABETES MELLITUS
     Route: 065
  4. INSULIN [Concomitant]
     Active Substance: INSULIN NOS
     Indication: DIABETES MELLITUS
     Dosage: 2 CC
     Route: 065
     Dates: start: 20160822, end: 20160823
  5. METFORMIN [Concomitant]
     Active Substance: METFORMIN HYDROCHLORIDE
     Indication: DIABETES MELLITUS
     Dosage: 1000 MG, BID
     Route: 065
     Dates: start: 200503, end: 20160921
  6. LEVOTIRON [Concomitant]
     Active Substance: LEVOTHYROXINE SODIUM
     Indication: HYPOTHYROIDISM
     Dosage: 100 UG, QD
     Route: 065
     Dates: start: 20160721, end: 20160921
  7. BASAL-H-INSULIN [Concomitant]
     Indication: DIABETES MELLITUS
     Route: 065
  8. CALCIUM+VITAMIN D3 [Concomitant]
     Indication: OSTEOPOROSIS
     Dosage: 1 TB
     Route: 048
     Dates: start: 20050303, end: 20160921
  9. SOM230 [Suspect]
     Active Substance: PASIREOTIDE
     Dosage: 0.3 MG, BID
     Route: 058
     Dates: start: 20160531, end: 20160828
  10. INSULIN ASPART [Concomitant]
     Active Substance: INSULIN ASPART
     Indication: DIABETES MELLITUS
     Dosage: 6-4-8 UNIT
     Route: 058
     Dates: start: 20160818, end: 20160905
  11. SOM230 [Suspect]
     Active Substance: PASIREOTIDE
     Dosage: 0.6 MG, BID
     Route: 058
     Dates: start: 20160829, end: 20160905

REACTIONS (2)
  - Hypoglycaemia [Recovered/Resolved]
  - Cholecystitis acute [Recovered/Resolved]

NARRATIVE: CASE EVENT DATE: 20160823
